FAERS Safety Report 14870830 (Version 1)
Quarter: 2018Q2

REPORT INFORMATION
  Report Type: Report from Study
  Country: US (occurrence: US)
  Receive Date: 20180509
  Receipt Date: 20180509
  Transmission Date: 20180711
  Serious: Yes (Hospitalization, Other)
  Sender: FDA-Public Use
  Company Number: US-GILEAD-2018-0337029

PATIENT
  Age: 74 Year
  Sex: Female

DRUGS (2)
  1. AMBRISENTAN [Suspect]
     Active Substance: AMBRISENTAN
     Indication: PRODUCT USED FOR UNKNOWN INDICATION
     Dosage: 10 MG, QD
     Route: 065
     Dates: start: 201611
  2. ADCIRCA [Concomitant]
     Active Substance: TADALAFIL

REACTIONS (6)
  - Head injury [Unknown]
  - Syncope [Recovered/Resolved]
  - Procedural complication [Recovered/Resolved]
  - Arthritis [Recovered/Resolved]
  - Limb injury [Unknown]
  - Joint injury [Unknown]

NARRATIVE: CASE EVENT DATE: 20180423
